FAERS Safety Report 8383494-9 (Version None)
Quarter: 2012Q1

REPORT INFORMATION
  Report Type: 
  Country: None (occurrence: None)
  Receive Date: 20120323
  Receipt Date: 20110318
  Transmission Date: 20120608
  Serious: Yes (Hospitalization, Other)
  Sender: FDA-Public Use
  Company Number: 163-21880-11032530

PATIENT
  Age: 74 Year
  Sex: Male

DRUGS (10)
  1. TRAZODONE HCL [Concomitant]
  2. COMBIVENT [Concomitant]
  3. OMEPRAZOLE [Concomitant]
  4. SEREVENT [Concomitant]
  5. PREDNISONE TAB [Concomitant]
  6. ALBUTEROL [Concomitant]
  7. DECADRON [Concomitant]
  8. REVLIMID [Suspect]
     Indication: MULTIPLE MYELOMA
     Dosage: 25 MG, DAILY, PO 15 MG, DAILY, PO
     Route: 048
     Dates: start: 20080301, end: 20090501
  9. REVLIMID [Suspect]
     Indication: MULTIPLE MYELOMA
     Dosage: 25 MG, DAILY, PO 15 MG, DAILY, PO
     Route: 048
     Dates: start: 20090501
  10. FLUTICASONE PROPIONATE [Concomitant]

REACTIONS (3)
  - LEUKOPENIA [None]
  - DEEP VEIN THROMBOSIS [None]
  - PULMONARY EMBOLISM [None]
